FAERS Safety Report 4832281-4 (Version None)
Quarter: 2005Q4

REPORT INFORMATION
  Report Type: 
  Country: None (occurrence: None)
  Receive Date: 20051116
  Receipt Date: 20051116
  Transmission Date: 20060501
  Serious: Yes (Other)
  Sender: FDA-Public Use
  Company Number: None

PATIENT
  Sex: Female

DRUGS (4)
  1. ZOCOR [Suspect]
     Indication: CORONARY ARTERY DISEASE
  2. ZOCOR [Suspect]
     Indication: HYPERLIPIDAEMIA
  3. MEVACOR [Suspect]
     Indication: CORONARY ARTERY DISEASE
  4. MEVACOR [Suspect]
     Indication: HYPERLIPIDAEMIA

REACTIONS (3)
  - DRUG INTOLERANCE [None]
  - LOW DENSITY LIPOPROTEIN INCREASED [None]
  - MYALGIA [None]
